FAERS Safety Report 13580770 (Version 3)
Quarter: 2017Q3

REPORT INFORMATION
  Report Type: Report from Study
  Country: JP (occurrence: JP)
  Receive Date: 20170525
  Receipt Date: 20170705
  Transmission Date: 20171127
  Serious: Yes (Hospitalization)
  Sender: FDA-Public Use
  Company Number: JP-UCBSA-2017019238

PATIENT
  Age: 91 Year
  Sex: Female
  Weight: 55 kg

DRUGS (13)
  1. LASIX [Concomitant]
     Active Substance: FUROSEMIDE
     Indication: PRODUCT USED FOR UNKNOWN INDICATION
     Route: 042
     Dates: start: 20161027, end: 20161101
  2. ALOSENN [Concomitant]
     Active Substance: SENNA LEAF
     Indication: PRODUCT USED FOR UNKNOWN INDICATION
     Dosage: UNK
     Dates: end: 20161027
  3. DIAPP [Concomitant]
     Active Substance: DIAZEPAM
     Indication: FOCAL DYSCOGNITIVE SEIZURES
     Route: 054
     Dates: start: 20161029, end: 20161030
  4. ALFACALCIDOL [Concomitant]
     Active Substance: ALFACALCIDOL
     Indication: PRODUCT USED FOR UNKNOWN INDICATION
     Dosage: UNK
     Dates: end: 20161027
  5. ALTAT [Concomitant]
     Active Substance: ROXATIDINE ACETATE HYDROCHLORIDE
     Indication: PRODUCT USED FOR UNKNOWN INDICATION
     Dosage: UNK
     Dates: end: 20161027
  6. SPIRONOLACTONE. [Concomitant]
     Active Substance: SPIRONOLACTONE
     Indication: PRODUCT USED FOR UNKNOWN INDICATION
     Dosage: UNK
     Dates: end: 20161027
  7. BROTIZOLAM [Concomitant]
     Active Substance: BROTIZOLAM
     Indication: PRODUCT USED FOR UNKNOWN INDICATION
     Dosage: UNK
     Dates: end: 20161027
  8. LEVETIRACETAM. [Suspect]
     Active Substance: LEVETIRACETAM
     Indication: FOCAL DYSCOGNITIVE SEIZURES
     Dosage: 500 MG, 2X/DAY (BID)
     Route: 041
     Dates: start: 20161028, end: 20161101
  9. HORIZON [Concomitant]
     Active Substance: DIAZEPAM
     Indication: FOCAL DYSCOGNITIVE SEIZURES
     Route: 042
     Dates: start: 20161028, end: 20161028
  10. HEPARIN SODIUM. [Concomitant]
     Active Substance: HEPARIN SODIUM
     Indication: PRODUCT USED FOR UNKNOWN INDICATION
     Route: 042
     Dates: start: 20161027, end: 20161111
  11. OMEPRAZOLE. [Concomitant]
     Active Substance: OMEPRAZOLE
     Indication: PRODUCT USED FOR UNKNOWN INDICATION
     Route: 042
     Dates: start: 20161027, end: 20161101
  12. MAGMITT [Concomitant]
     Active Substance: MAGNESIUM OXIDE
     Indication: PRODUCT USED FOR UNKNOWN INDICATION
     Dosage: UNK
     Dates: end: 20161027
  13. ROZEREM [Concomitant]
     Active Substance: RAMELTEON
     Indication: PRODUCT USED FOR UNKNOWN INDICATION
     Dosage: UNK
     Dates: end: 20161027

REACTIONS (3)
  - Pyelonephritis [Recovered/Resolved]
  - Bradycardia [Recovering/Resolving]
  - Blood bilirubin increased [Unknown]

NARRATIVE: CASE EVENT DATE: 20161028
